FAERS Safety Report 6377515-2 (Version None)
Quarter: 2009Q3

REPORT INFORMATION
  Report Type: 
  Country: None (occurrence: None)
  Receive Date: 20090925
  Receipt Date: 20090918
  Transmission Date: 20100115
  Serious: Yes (Other)
  Sender: FDA-Public Use
  Company Number: CN-PFIZER INC-2009271747

PATIENT

DRUGS (2)
  1. LIPITOR [Suspect]
     Dosage: UNK
  2. COLCHICINE [Suspect]
     Indication: GOUT
     Dosage: UNK

REACTIONS (4)
  - FALL [None]
  - FRACTURE [None]
  - GOUT [None]
  - SENSORY DISTURBANCE [None]
